FAERS Safety Report 13832477 (Version 1)
Quarter: 2017Q3

REPORT INFORMATION
  Report Type: Spontaneous
  Country: US (occurrence: US)
  Receive Date: 20170803
  Receipt Date: 20170803
  Transmission Date: 20171127
  Serious: No
  Sender: FDA-Public Use
  Company Number: US-ROCHE-1244687

PATIENT
  Age: 67 Year
  Sex: Female

DRUGS (3)
  1. BONIVA [Suspect]
     Active Substance: IBANDRONATE SODIUM
     Indication: OSTEOPOROSIS
     Dosage: STANDARD DOSE
     Route: 048
     Dates: start: 20130701
  2. DIOVAN HCT [Concomitant]
     Active Substance: HYDROCHLOROTHIAZIDE\VALSARTAN
     Dosage: 80/12.5 MG
     Route: 048
  3. CRESTOR [Concomitant]
     Active Substance: ROSUVASTATIN CALCIUM
     Route: 048

REACTIONS (7)
  - Nausea [Recovering/Resolving]
  - Partial seizures [Not Recovered/Not Resolved]
  - Malaise [Unknown]
  - Chills [Recovering/Resolving]
  - Dyspnoea [Not Recovered/Not Resolved]
  - Diarrhoea [Recovering/Resolving]
  - Back pain [Not Recovered/Not Resolved]

NARRATIVE: CASE EVENT DATE: 20130701
